FAERS Safety Report 20193231 (Version 2)
Quarter: 2021Q4

REPORT INFORMATION
  Report Type: Spontaneous
  Country: US (occurrence: US)
  Receive Date: 20211216
  Receipt Date: 20211224
  Transmission Date: 20220303
  Serious: Yes (Other)
  Sender: FDA-Public Use
  Company Number: US-JNJFOC-20211214937

PATIENT
  Age: 75 Year
  Sex: Male

DRUGS (3)
  1. SPRAVATO [Suspect]
     Active Substance: ESKETAMINE
     Indication: Depression
     Dosage: 5 DOSES
     Dates: start: 20211004, end: 20211018
  2. SPRAVATO [Suspect]
     Active Substance: ESKETAMINE
     Dosage: 7 DOSES
     Dates: start: 20211021, end: 20211118
  3. SPRAVATO [Suspect]
     Active Substance: ESKETAMINE
     Dosage: 1 DOSES
     Dates: start: 20211130

REACTIONS (4)
  - Feeling abnormal [Unknown]
  - Product dose omission issue [Unknown]
  - Drug ineffective [Unknown]
  - Depression [Unknown]

NARRATIVE: CASE EVENT DATE: 20211206
